FAERS Safety Report 9416071 (Version 1)
Quarter: 2013Q3

REPORT INFORMATION
  Report Type: Spontaneous
  Country: US (occurrence: None)
  Receive Date: 20130723
  Receipt Date: 20130723
  Transmission Date: 20140515
  Serious: Yes (Life-Threatening, Hospitalization)
  Sender: FDA-Public Use
  Company Number: None

PATIENT
  Age: 37 Year
  Sex: Female

DRUGS (1)
  1. OXYCODONE/APAP [Suspect]
     Indication: PAIN
     Dosage: 1 TAB, Q6H, PO
     Route: 048
     Dates: start: 20130720

REACTIONS (5)
  - Urticaria [None]
  - Pruritus generalised [None]
  - Obstructive airways disorder [None]
  - Product substitution issue [None]
  - Hypersensitivity [None]
